FAERS Safety Report 12531343 (Version 1)
Quarter: 2016Q3

REPORT INFORMATION
  Report Type: Report from Study
  Country: BR (occurrence: BR)
  Receive Date: 20160706
  Receipt Date: 20160706
  Transmission Date: 20161109
  Serious: Yes (Death)
  Sender: FDA-Public Use
  Company Number: PHHY2016BR092948

PATIENT
  Sex: Male

DRUGS (1)
  1. FORASEQ [Suspect]
     Active Substance: BUDESONIDE\FORMOTEROL FUMARATE
     Indication: LUNG DISORDER
     Dosage: 1 DF, BID (200 UG), (MORE THAN SIX YEARS AGO)
     Route: 055

REACTIONS (3)
  - Chikungunya virus infection [Fatal]
  - Renal disorder [Fatal]
  - Product use issue [Unknown]
